FAERS Safety Report 14329441 (Version 2)
Quarter: 2018Q1

REPORT INFORMATION
  Report Type: Spontaneous
  Country: CZ (occurrence: CZ)
  Receive Date: 20171227
  Receipt Date: 20180207
  Transmission Date: 20180509
  Serious: Yes (Other)
  Sender: FDA-Public Use
  Company Number: CZ-TEVA-2017-CZ-836300

PATIENT
  Age: 50 Year
  Sex: Male
  Weight: 160 kg

DRUGS (3)
  1. DAPAGLIFLOZIN. [Suspect]
     Active Substance: DAPAGLIFLOZIN
     Indication: DIABETES MELLITUS
     Route: 048
     Dates: start: 201604, end: 2017
  2. INSULIN [Suspect]
     Active Substance: INSULIN NOS
     Indication: DIABETES MELLITUS
     Dosage: INSULIN GLARGIN (BASAL)
     Route: 058
     Dates: start: 2015
  3. METFORMIN [Suspect]
     Active Substance: METFORMIN HYDROCHLORIDE
     Indication: DIABETES MELLITUS
     Route: 048
     Dates: start: 2015

REACTIONS (3)
  - Diabetes mellitus [Recovering/Resolving]
  - Glycosylated haemoglobin increased [Recovering/Resolving]
  - Hyperglycaemia [Recovering/Resolving]

NARRATIVE: CASE EVENT DATE: 201701
